FAERS Safety Report 5774606-1 (Version None)
Quarter: 2008Q2

REPORT INFORMATION
  Report Type: 
  Country: None (occurrence: None)
  Receive Date: 20080612
  Receipt Date: 20080607
  Transmission Date: 20081010
  Serious: Yes (Other)
  Sender: FDA-Public Use
  Company Number: 2008SP001229

PATIENT
  Age: 50 Year
  Sex: Female

DRUGS (2)
  1. PEG-INTRON [Suspect]
     Indication: HEPATITIS C
     Dosage: SC
     Route: 058
     Dates: start: 20071102, end: 20080411
  2. REBETOL [Suspect]
     Indication: HEPATITIS C
     Dosage: PO
     Route: 048
     Dates: start: 20071102, end: 20080411

REACTIONS (26)
  - ABDOMINAL DISTENSION [None]
  - BACK PAIN [None]
  - CONFUSIONAL STATE [None]
  - EMOTIONAL DISORDER [None]
  - EYELID PTOSIS [None]
  - FACIAL PALSY [None]
  - FEELING ABNORMAL [None]
  - HYPERHIDROSIS [None]
  - INJECTION SITE REACTION [None]
  - INSOMNIA [None]
  - IRRITABILITY [None]
  - MUSCULOSKELETAL PAIN [None]
  - NAUSEA [None]
  - ORAL INTAKE REDUCED [None]
  - PALLOR [None]
  - PALPITATIONS [None]
  - PAROSMIA [None]
  - POLLAKIURIA [None]
  - RESTLESSNESS [None]
  - THINKING ABNORMAL [None]
  - THYROID DISORDER [None]
  - TREMOR [None]
  - URINARY HESITATION [None]
  - URINARY RETENTION [None]
  - WEIGHT DECREASED [None]
  - WHITE BLOOD CELL COUNT DECREASED [None]
